FAERS Safety Report 6862753-2 (Version None)
Quarter: 2010Q3

REPORT INFORMATION
  Report Type: 
  Country: None (occurrence: None)
  Receive Date: 20100719
  Receipt Date: 20100702
  Transmission Date: 20110219
  Serious: Yes (Hospitalization)
  Sender: FDA-Public Use
  Company Number: BVT-000581

PATIENT
  Sex: Female

DRUGS (7)
  1. KINERET [Suspect]
     Indication: POLYARTHRITIS
     Dates: start: 20031001, end: 20080601
  2. KINERET [Suspect]
     Indication: POLYARTHRITIS
     Dates: start: 20090501
  3. ARAVA [Suspect]
     Indication: POLYARTHRITIS
     Dates: start: 19991201, end: 20080601
  4. LEFLUNOMIDE (LEFLUNODIME) [Suspect]
     Indication: POLYARTHRITIS
  5. ANTIINFLAMMATORY/ANTIRHEUMATIC NON-STEROIDS [Concomitant]
  6. METHOTREXATE [Concomitant]
  7. GLUCOCORTICOIDS [Concomitant]

REACTIONS (13)
  - BONE ABSCESS [None]
  - BONE DISORDER [None]
  - CITROBACTER TEST POSITIVE [None]
  - ESCHERICHIA TEST POSITIVE [None]
  - IMPAIRED HEALING [None]
  - INFECTION [None]
  - OSTEONECROSIS [None]
  - PERIPHERAL VASCULAR DISORDER [None]
  - PROTEUS TEST POSITIVE [None]
  - PSEUDARTHROSIS [None]
  - SKIN DISORDER [None]
  - STAPHYLOCOCCUS TEST POSITIVE [None]
  - WOUND SECRETION [None]
